FAERS Safety Report 9450715 (Version 3)
Quarter: 2013Q4

REPORT INFORMATION
  Report Type: Spontaneous
  Country: US (occurrence: None)
  Receive Date: 20130807
  Receipt Date: 20131030
  Transmission Date: 20140711
  Serious: Yes (Hospitalization, Congenital Anomaly)
  Sender: FDA-Public Use
  Company Number: SYM-2013-07646

PATIENT
  Age: 20 Day
  Sex: Male
  Weight: 3.16 kg

DRUGS (2)
  1. WELLBUTRIN [Suspect]
     Indication: PRODUCT USED FOR UNKNOWN INDICATION
     Dates: start: 200010
  2. PAXIL [Suspect]
     Indication: PRODUCT USED FOR UNKNOWN INDICATION
     Route: 064

REACTIONS (29)
  - Maternal drugs affecting foetus [None]
  - Hypoplastic right heart syndrome [None]
  - Failure to thrive [None]
  - Atrial septal defect [None]
  - Congenital mitral valve stenosis [None]
  - Pulmonary artery stenosis congenital [None]
  - Hypoplastic left heart syndrome [None]
  - Left ventricular dysfunction [None]
  - Gastrooesophageal reflux disease [None]
  - Feeding disorder [None]
  - Aspiration [None]
  - Gastric fistula [None]
  - Cyanosis [None]
  - Fatigue [None]
  - Dyspnoea exertional [None]
  - Procedural nausea [None]
  - Pericardial effusion [None]
  - Hypertension [None]
  - Pleural effusion [None]
  - Aortic valve incompetence [None]
  - Tricuspid valve incompetence [None]
  - Right ventricular dysfunction [None]
  - Heart sounds abnormal [None]
  - Right ventricular failure [None]
  - Respiratory disorder [None]
  - Aortic dilatation [None]
  - Congenital aortic stenosis [None]
  - Congenital mitral valve stenosis [None]
  - Pulmonary artery stenosis [None]
